FAERS Safety Report 26092624 (Version 1)
Quarter: 2025Q4

REPORT INFORMATION
  Report Type: Spontaneous
  Country: CN (occurrence: CN)
  Receive Date: 20251126
  Receipt Date: 20251126
  Transmission Date: 20260118
  Serious: No
  Sender: ALKEM
  Company Number: None

PATIENT
  Age: 63 Year
  Sex: Male

DRUGS (13)
  1. MYCOPHENOLATE MOFETIL [Suspect]
     Active Substance: MYCOPHENOLATE MOFETIL
     Indication: Immune-mediated myositis
     Dosage: UNK
     Route: 048
  2. MYCOPHENOLATE MOFETIL [Suspect]
     Active Substance: MYCOPHENOLATE MOFETIL
     Indication: Anti-SRP antibody positive
  3. METHYLPREDNISOLONE [Suspect]
     Active Substance: METHYLPREDNISOLONE
     Indication: Immune-mediated myositis
     Dosage: 500 MG/DAY (FOR 3 COSEQUETIVE DAYS)
     Route: 042
  4. METHYLPREDNISOLONE [Suspect]
     Active Substance: METHYLPREDNISOLONE
     Indication: Anti-SRP antibody positive
     Dosage: 240 MG/DAY (FOR 3 COSEQUETIVE DAYS)
     Route: 042
  5. METHYLPREDNISOLONE [Suspect]
     Active Substance: METHYLPREDNISOLONE
     Dosage: 120 MG/DAY (FOR 3 COSEQUETIVE DAYS)
     Route: 042
  6. METHYLPREDNISOLONE [Suspect]
     Active Substance: METHYLPREDNISOLONE
     Dosage: 80 MG/DAY (FOR 3 COSEQUETIVE DAYS)
     Route: 042
  7. GLUTATHIONE [Concomitant]
     Active Substance: GLUTATHIONE
     Indication: Immune-mediated myositis
     Dosage: UNK
     Route: 065
  8. GLUTATHIONE [Concomitant]
     Active Substance: GLUTATHIONE
     Indication: Anti-SRP antibody positive
  9. LECITHIN [Concomitant]
     Active Substance: LECITHIN
     Indication: Immune-mediated myositis
     Dosage: UNK
     Route: 065
  10. LECITHIN [Concomitant]
     Active Substance: LECITHIN
     Indication: Anti-SRP antibody positive
  11. PREDNISONE [Concomitant]
     Active Substance: PREDNISONE
     Indication: Immune-mediated myositis
     Dosage: 50 MG/DAY
     Route: 048
  12. PREDNISONE [Concomitant]
     Active Substance: PREDNISONE
     Indication: Anti-SRP antibody positive
     Dosage: 5 MILLIGRAM, ONCE IN 2 WEEKS (REDUCED DOSE)
     Route: 048
  13. PREDNISONE [Concomitant]
     Active Substance: PREDNISONE
     Dosage: 20 MG/DAY (MAINTANENCE)
     Route: 048

REACTIONS (3)
  - Aspartate aminotransferase increased [Unknown]
  - Alanine aminotransferase increased [Unknown]
  - Oedema [Unknown]
